FAERS Safety Report 9525336 (Version 1)
Quarter: 2013Q3

REPORT INFORMATION
  Report Type: Spontaneous
  Country: NL (occurrence: NL)
  Receive Date: 20130916
  Receipt Date: 20130916
  Transmission Date: 20140515
  Serious: Yes (Other)
  Sender: FDA-Public Use
  Company Number: NL-NAPPMUNDI-GBR-2013-0015592

PATIENT
  Age: 89 Year
  Sex: Female

DRUGS (1)
  1. BUTRANS 5 MICROGRAM/UUR [Suspect]
     Indication: COMPRESSION FRACTURE
     Dosage: 5 MCG, Q1H
     Route: 062

REACTIONS (1)
  - Delirium [Unknown]
